FAERS Safety Report 5753595-X (Version None)
Quarter: 2008Q2

REPORT INFORMATION
  Report Type: 
  Country: None (occurrence: None)
  Receive Date: 20080521
  Receipt Date: 20080521
  Transmission Date: 20081010
  Serious: Yes (Other)
  Sender: FDA-Public Use
  Company Number: None

PATIENT
  Age: 48 Year
  Sex: Female
  Weight: 58.9676 kg

DRUGS (1)
  1. YAZ [Suspect]
     Dosage: DAILY
     Dates: start: 20080317, end: 20080430

REACTIONS (3)
  - RETINAL OEDEMA [None]
  - RETINAL VEIN OCCLUSION [None]
  - VISUAL DISTURBANCE [None]
